FAERS Safety Report 18559319 (Version 1)
Quarter: 2020Q4

REPORT INFORMATION
  Report Type: Spontaneous
  Country: FR (occurrence: FR)
  Receive Date: 20201130
  Receipt Date: 20201130
  Transmission Date: 20210114
  Serious: Yes (Life-Threatening, Hospitalization)
  Sender: FDA-Public Use
  Company Number: FR-PFIZER INC-2020468638

PATIENT
  Age: 44 Year
  Sex: Male
  Weight: 84 kg

DRUGS (1)
  1. IBUPROFEN. [Suspect]
     Active Substance: IBUPROFEN
     Indication: LUNG DISORDER
     Dosage: 1200 MG, 1X/DAY
     Route: 048
     Dates: start: 20201010, end: 20201015

REACTIONS (2)
  - COVID-19 [Recovered/Resolved]
  - Product use issue [Unknown]

NARRATIVE: CASE EVENT DATE: 20201010
